FAERS Safety Report 7353438-7 (Version None)
Quarter: 2011Q1

REPORT INFORMATION
  Report Type: 
  Country: None (occurrence: None)
  Receive Date: 20110315
  Receipt Date: 20110304
  Transmission Date: 20110831
  Serious: Yes (Hospitalization)
  Sender: FDA-Public Use
  Company Number: US-JNJFOC-20110304948

PATIENT
  Sex: Male

DRUGS (2)
  1. EXTRA STRENGTH TYLENOL [Suspect]
     Indication: MUSCULOSKELETAL PAIN
     Route: 048
  2. EXTRA STRENGTH TYLENOL [Suspect]
     Indication: BACK PAIN
     Route: 048

REACTIONS (2)
  - CARDIAC DISORDER [None]
  - PRODUCT QUALITY ISSUE [None]
